FAERS Safety Report 5267622-X (Version None)
Quarter: 2007Q1

REPORT INFORMATION
  Report Type: 
  Country: None (occurrence: None)
  Receive Date: 20070316
  Receipt Date: 20070309
  Transmission Date: 20070707
  Serious: Yes (Death)
  Sender: FDA-Public Use
  Company Number: FR-AMGEN-UK214701

PATIENT
  Sex: Male

DRUGS (3)
  1. ARANESP [Suspect]
     Indication: ANAEMIA OF MALIGNANT DISEASE
     Dates: start: 20050601
  2. PREDNISONE [Concomitant]
     Dates: start: 19970801, end: 20020901
  3. MYCOPHENOLATE MOFETIL [Concomitant]
     Dates: start: 19970801

REACTIONS (2)
  - METASTASES TO LIVER [None]
  - METASTASES TO PERITONEUM [None]
